FAERS Safety Report 6396392-7 (Version None)
Quarter: 2009Q4

REPORT INFORMATION
  Report Type: 
  Country: None (occurrence: None)
  Receive Date: 20091012
  Receipt Date: 20091005
  Transmission Date: 20100525
  Serious: Yes (Other)
  Sender: FDA-Public Use
  Company Number: US-JNJFOC-20091001734

PATIENT
  Sex: Female
  Weight: 64.86 kg

DRUGS (2)
  1. FENTANYL TRANSDERMAL SYSTEM [Suspect]
     Indication: ABDOMINAL PAIN
     Route: 062
  2. FENTANYL [Suspect]
     Indication: ABDOMINAL PAIN
     Dosage: WATSON FENTANYL TRANSDERMAL SYSTEM
     Route: 062

REACTIONS (3)
  - CONVULSION [None]
  - PRODUCT ADHESION ISSUE [None]
  - WRONG TECHNIQUE IN DRUG USAGE PROCESS [None]
